FAERS Safety Report 15153076 (Version 2)
Quarter: 2018Q3

REPORT INFORMATION
  Report Type: Spontaneous
  Country: US (occurrence: US)
  Receive Date: 20180717
  Receipt Date: 20180816
  Transmission Date: 20181010
  Serious: No
  Sender: FDA-Public Use
  Company Number: US-PFIZER INC-2018287359

PATIENT
  Age: 73 Year
  Sex: Male
  Weight: 139.25 kg

DRUGS (6)
  1. SAXAGLIPTIN [Concomitant]
     Active Substance: SAXAGLIPTIN
     Indication: TYPE 1 DIABETES MELLITUS
     Dosage: 5 MG, 1X/DAY
  2. EUCRISA [Suspect]
     Active Substance: CRISABOROLE
     Indication: SKIN DISCOLOURATION
     Dosage: UNK
     Dates: start: 201806
  3. FUROSEMIDE. [Concomitant]
     Active Substance: FUROSEMIDE
     Indication: SWELLING
     Dosage: 20 MG, UNK
  4. FUROSEMIDE. [Concomitant]
     Active Substance: FUROSEMIDE
     Indication: FLUID RETENTION
  5. EUCRISA [Suspect]
     Active Substance: CRISABOROLE
     Indication: DERMATITIS ATOPIC
  6. METFORMIN [Concomitant]
     Active Substance: METFORMIN HYDROCHLORIDE
     Indication: TYPE 1 DIABETES MELLITUS
     Dosage: 500 MG, 2X/DAY

REACTIONS (5)
  - Rash [Unknown]
  - Pruritus [Unknown]
  - Skin discolouration [Unknown]
  - Drug ineffective [Not Recovered/Not Resolved]
  - Condition aggravated [Unknown]
